FAERS Safety Report 8392030-2 (Version None)
Quarter: 2012Q1

REPORT INFORMATION
  Report Type: 
  Country: None (occurrence: None)
  Receive Date: 20120323
  Receipt Date: 20110321
  Transmission Date: 20120608
  Serious: Yes (Disabling)
  Sender: FDA-Public Use
  Company Number: 163-21880-11030082

PATIENT
  Age: 74 Year
  Sex: Female

DRUGS (3)
  1. REVLIMID [Suspect]
     Indication: MULTIPLE MYELOMA
     Dosage: 25 MG, DAILY FOR 21 DAYS, PO, 5 MG, DAILY FOR 21 DAYS, PO,  10 MG, DAILY FOR 21 DAYS, PO
     Route: 048
     Dates: start: 20100801
  2. REVLIMID [Suspect]
     Indication: MULTIPLE MYELOMA
     Dosage: 25 MG, DAILY FOR 21 DAYS, PO, 5 MG, DAILY FOR 21 DAYS, PO,  10 MG, DAILY FOR 21 DAYS, PO
     Route: 048
     Dates: start: 20101001, end: 20110101
  3. REVLIMID [Suspect]
     Indication: MULTIPLE MYELOMA
     Dosage: 25 MG, DAILY FOR 21 DAYS, PO, 5 MG, DAILY FOR 21 DAYS, PO,  10 MG, DAILY FOR 21 DAYS, PO
     Route: 048
     Dates: start: 20100901

REACTIONS (1)
  - PANCYTOPENIA [None]
